FAERS Safety Report 9043590 (Version 1)
Quarter: 2013Q1

REPORT INFORMATION
  Report Type: Report from Study
  Country: US (occurrence: US)
  Receive Date: 20130129
  Receipt Date: 20130129
  Transmission Date: 20140127
  Serious: No
  Sender: FDA-Public Use
  Company Number: US-ABBOTT-12P-163-0912902-00

PATIENT
  Age: 28 Year
  Sex: Male

DRUGS (4)
  1. HUMIRA 40 MG/0.8 ML PEN [Suspect]
     Indication: PSORIASIS
     Dates: start: 201008
  2. PSORIASIS OINTMENT [Concomitant]
     Indication: PSORIASIS
     Route: 061
  3. PSORIASIS OINTMENT [Concomitant]
     Indication: PSORIASIS
     Route: 061
  4. PSORIASIS OINTMENT [Concomitant]
     Indication: PSORIASIS
     Route: 061

REACTIONS (5)
  - Psoriasis [Not Recovered/Not Resolved]
  - Injection site haemorrhage [Not Recovered/Not Resolved]
  - Injection site bruising [Not Recovered/Not Resolved]
  - Injection site pain [Not Recovered/Not Resolved]
  - Muscle strain [Not Recovered/Not Resolved]
